FAERS Safety Report 14081551 (Version 1)
Quarter: 2017Q4

REPORT INFORMATION
  Report Type: Spontaneous
  Country: SE (occurrence: SE)
  Receive Date: 20171013
  Receipt Date: 20171013
  Transmission Date: 20180321
  Serious: Yes (Hospitalization)
  Sender: FDA-Public Use
  Company Number: SE-TEVA-812844ISR

PATIENT
  Age: 67 Year
  Sex: Female

DRUGS (3)
  1. DOXORUBICIN [Suspect]
     Active Substance: DOXORUBICIN
     Route: 042
  2. VINCRISTINE [Concomitant]
     Active Substance: VINCRISTINE
     Route: 042
  3. CYCLOPHOSPHAMIDE (ANHYDROUS) INTRAVENOUS [Concomitant]
     Route: 042

REACTIONS (1)
  - Agranulocytosis [Recovered/Resolved]
